FAERS Safety Report 17415292 (Version 4)
Quarter: 2020Q1

REPORT INFORMATION
  Report Type: Spontaneous
  Country: FR (occurrence: FR)
  Receive Date: 20200213
  Receipt Date: 20200218
  Transmission Date: 20200409
  Serious: Yes (Other)
  Sender: FDA-Public Use
  Company Number: FR-PFIZER INC-2020055933

PATIENT
  Age: 91 Year
  Sex: Female
  Weight: 58 kg

DRUGS (1)
  1. VYNDAQEL [Suspect]
     Active Substance: TAFAMIDIS MEGLUMINE
     Indication: CARDIAC AMYLOIDOSIS
     Dosage: 20 MG, DAILY
     Dates: end: 20200113

REACTIONS (4)
  - Oedema peripheral [Unknown]
  - Drug ineffective [Unknown]
  - Cardiac failure [Unknown]
  - Condition aggravated [Unknown]
